FAERS Safety Report 15904156 (Version 1)
Quarter: 2019Q1

REPORT INFORMATION
  Report Type: Spontaneous
  Country: CA (occurrence: CA)
  Receive Date: 20190204
  Receipt Date: 20190204
  Transmission Date: 20190417
  Serious: Yes (Other)
  Sender: FDA-Public Use
  Company Number: CA-TEVA-2019-CA-1007377

PATIENT
  Age: 60 Year
  Sex: Male

DRUGS (14)
  1. CHAMPIX [Concomitant]
     Active Substance: VARENICLINE TARTRATE
  2. FLOVENT [Concomitant]
     Active Substance: FLUTICASONE PROPIONATE
  3. VIT B12 1,000 MCG [Concomitant]
  4. AMLODIPINE [Concomitant]
     Active Substance: AMLODIPINE BESYLATE
  5. ASPIRIN. [Concomitant]
     Active Substance: ASPIRIN
  6. PANTOPRAZOLE [Concomitant]
     Active Substance: PANTOPRAZOLE
  7. CYTOVENE IV [Concomitant]
     Active Substance: GANCICLOVIR SODIUM
  8. SENNA [Concomitant]
     Active Substance: SENNA LEAF\SENNOSIDES\SENNOSIDES A AND B
  9. ATORVASTATIN [Concomitant]
     Active Substance: ATORVASTATIN
  10. PIPERACILLIN SODIUM/TAZOBACTAM SODIUM POWDER FOR INJECTION [Suspect]
     Active Substance: PIPERACILLIN SODIUM\TAZOBACTAM SODIUM
     Indication: PLEURAL EFFUSION
  11. PERINDOPRIL [Suspect]
     Active Substance: PERINDOPRIL
     Dosage: 8 MILLIGRAM DAILY;
     Route: 048
  12. VENTOLIN [Concomitant]
     Active Substance: ALBUTEROL SULFATE
  13. INDAPAMIDE. [Suspect]
     Active Substance: INDAPAMIDE
     Dosage: 2.5 MILLIGRAM DAILY;
     Route: 048
  14. TESTOSTERONE. [Concomitant]
     Active Substance: TESTOSTERONE

REACTIONS (2)
  - Swollen tongue [Recovered/Resolved]
  - Angioedema [Recovered/Resolved]
